FAERS Safety Report 5487570-X (Version None)
Quarter: 2007Q4

REPORT INFORMATION
  Report Type: 
  Country: None (occurrence: None)
  Receive Date: 20071015
  Receipt Date: 20070930
  Transmission Date: 20080405
  Serious: No
  Sender: FDA-Public Use
  Company Number: 2007S1009450

PATIENT
  Age: 72 Year
  Sex: Female

DRUGS (4)
  1. SERTRALINE [Suspect]
     Indication: DRUG USE FOR UNKNOWN INDICATION
  2. SOTALOL HCL [Concomitant]
  3. DIGOXIN [Concomitant]
  4. ACENOCOUMAROL (ACENOCOUMAROL) [Concomitant]

REACTIONS (9)
  - BRADYCARDIA [None]
  - CARDIOACTIVE DRUG LEVEL DECREASED [None]
  - ELECTROCARDIOGRAM QT PROLONGED [None]
  - ELECTROCARDIOGRAM T WAVE ABNORMAL [None]
  - EXTRASYSTOLES [None]
  - HYPERGLYCAEMIA [None]
  - TORSADE DE POINTES [None]
  - TRANSAMINASES INCREASED [None]
  - VENTRICULAR TACHYCARDIA [None]
